FAERS Safety Report 5726792-7 (Version None)
Quarter: 2008Q2

REPORT INFORMATION
  Report Type: 
  Country: None (occurrence: None)
  Receive Date: 20080502
  Receipt Date: 20080422
  Transmission Date: 20081010
  Serious: Yes (Other)
  Sender: FDA-Public Use
  Company Number: US-PFIZER INC-2008022099

PATIENT
  Sex: Female
  Weight: 49.9 kg

DRUGS (2)
  1. CHANTIX [Suspect]
     Indication: SMOKING CESSATION THERAPY
     Route: 048
  2. SPIRIVA [Concomitant]

REACTIONS (4)
  - DIPLOPIA [None]
  - DYSPHORIA [None]
  - INSOMNIA [None]
  - TREMOR [None]
